FAERS Safety Report 18675738 (Version 1)
Quarter: 2020Q4

REPORT INFORMATION
  Report Type: Spontaneous
  Country: US (occurrence: US)
  Receive Date: 20201229
  Receipt Date: 20201229
  Transmission Date: 20210114
  Serious: Yes (Other)
  Sender: FDA-Public Use
  Company Number: US-ASTRAZENECA-2020SF73375

PATIENT
  Sex: Female
  Weight: 65.3 kg

DRUGS (2)
  1. BREZTRI AEROSPHERE [Suspect]
     Active Substance: BUDESONIDE\FORMOTEROL\GLYCOPYRRONIUM
     Indication: ASTHMA
     Dosage: 2 PUFF TWO TIMES A DAY
     Route: 055
     Dates: start: 202011
  2. BREZTRI AEROSPHERE [Suspect]
     Active Substance: BUDESONIDE\FORMOTEROL\GLYCOPYRRONIUM
     Indication: CHRONIC OBSTRUCTIVE PULMONARY DISEASE
     Dosage: 2 PUFF TWO TIMES A DAY
     Route: 055
     Dates: start: 202011

REACTIONS (7)
  - Heart rate increased [Unknown]
  - Feeding disorder [Unknown]
  - Taste disorder [Unknown]
  - Oropharyngeal pain [Unknown]
  - Odynophagia [Unknown]
  - Headache [Unknown]
  - Palpitations [Unknown]
